FAERS Safety Report 11539138 (Version 1)
Quarter: 2015Q3

REPORT INFORMATION
  Report Type: Spontaneous
  Country: US (occurrence: None)
  Receive Date: 20150922
  Receipt Date: 20150922
  Transmission Date: 20151125
  Serious: Yes (Other)
  Sender: FDA-Public Use
  Company Number: None

PATIENT
  Age: 58 Year
  Sex: Female
  Weight: 90.72 kg

DRUGS (5)
  1. SEREQUEL [Concomitant]
  2. LITHIUM. [Concomitant]
     Active Substance: LITHIUM
  3. APAP MACHINE [Concomitant]
  4. TRAZODONE [Concomitant]
     Active Substance: TRAZODONE HYDROCHLORIDE
  5. BELSOMRA [Suspect]
     Active Substance: SUVOREXANT
     Indication: SLEEP APNOEA SYNDROME
     Route: 048
     Dates: start: 20150920, end: 20150921

REACTIONS (6)
  - Feeling abnormal [None]
  - Vision blurred [None]
  - Blindness [None]
  - Sleep disorder [None]
  - Disturbance in attention [None]
  - Weight increased [None]

NARRATIVE: CASE EVENT DATE: 20150920
